FAERS Safety Report 19032688 (Version 1)
Quarter: 2021Q1

REPORT INFORMATION
  Report Type: Spontaneous
  Country: US (occurrence: US)
  Receive Date: 20210319
  Receipt Date: 20210319
  Transmission Date: 20210420
  Serious: Yes (Other)
  Sender: FDA-Public Use
  Company Number: US-GILEAD-2021-0521872

PATIENT
  Age: 62 Year
  Sex: Male

DRUGS (12)
  1. LIDOCAINE. [Concomitant]
     Active Substance: LIDOCAINE
  2. CLONAZEPAM. [Concomitant]
     Active Substance: CLONAZEPAM
  3. DOVATO [Suspect]
     Active Substance: DOLUTEGRAVIR SODIUM\LAMIVUDINE
     Indication: HIV INFECTION
     Dosage: UNK
     Route: 065
  4. MAGNESIUM HYDROXIDE. [Concomitant]
     Active Substance: MAGNESIUM HYDROXIDE
  5. DIPHENHYDRAMINE. [Concomitant]
     Active Substance: DIPHENHYDRAMINE
  6. FAMOTIDINE. [Concomitant]
     Active Substance: FAMOTIDINE
  7. TRIPLE MAGNESIUM COMPLEX [Concomitant]
  8. BIKTARVY [Suspect]
     Active Substance: BICTEGRAVIR SODIUM\EMTRICITABINE\TENOFOVIR ALAFENAMIDE FUMARATE
     Indication: HIV INFECTION
     Dosage: UNK
     Route: 065
  9. ENSURE [NUTRIENTS NOS] [Concomitant]
  10. BROMELAIN [Concomitant]
     Active Substance: BROMELAINS
  11. ALUMINUM HYDROXIDE [ALUMINIUM HYDROXIDE] [Concomitant]
     Active Substance: ALUMINUM HYDROXIDE
  12. MARIJUANA [Concomitant]
     Active Substance: CANNABIS SATIVA SUBSP. INDICA TOP

REACTIONS (8)
  - Plicated tongue [Not Recovered/Not Resolved]
  - Productive cough [Not Recovered/Not Resolved]
  - Oral discomfort [Not Recovered/Not Resolved]
  - Anxiety [Not Recovered/Not Resolved]
  - Dyspepsia [Not Recovered/Not Resolved]
  - Pain in extremity [Recovered/Resolved]
  - Brain neoplasm [Not Recovered/Not Resolved]
  - Nervous system disorder [Not Recovered/Not Resolved]
